FAERS Safety Report 6141432-3 (Version None)
Quarter: 2009Q2

REPORT INFORMATION
  Report Type: 
  Country: None (occurrence: None)
  Receive Date: 20090402
  Receipt Date: 20090323
  Transmission Date: 20091009
  Serious: Yes (Hospitalization)
  Sender: FDA-Public Use
  Company Number: JP-AMGEN-US339174

PATIENT
  Sex: Female
  Weight: 70 kg

DRUGS (13)
  1. ENBREL [Suspect]
     Indication: RHEUMATOID ARTHRITIS
     Route: 058
     Dates: start: 20080904, end: 20090305
  2. PROGRAF [Concomitant]
     Route: 048
  3. PREDONINE [Concomitant]
     Route: 048
  4. PREDNISOLONE [Concomitant]
     Route: 048
  5. INFREE [Concomitant]
     Route: 048
  6. ISCOTIN [Concomitant]
     Route: 048
  7. BONALON [Concomitant]
     Route: 048
  8. OMEPRAL [Concomitant]
     Route: 048
  9. CELESTAMINE [Concomitant]
     Route: 048
  10. ACTOS [Concomitant]
     Route: 048
  11. POLYCARBOPHIL CALCIUM [Concomitant]
     Route: 048
  12. SALAZOSULFAPYRIDINE [Concomitant]
     Route: 048
  13. RIBOFLAVIN TETRABUTYRATE [Concomitant]
     Route: 065

REACTIONS (2)
  - MUSCULAR WEAKNESS [None]
  - SENSORY DISTURBANCE [None]
